FAERS Safety Report 10920259 (Version 1)
Quarter: 2015Q1

REPORT INFORMATION
  Report Type: Spontaneous
  Country: GB (occurrence: None)
  Receive Date: 20150313
  Receipt Date: 20150313
  Transmission Date: 20150721
  Serious: Yes (Other)
  Sender: FDA-Public Use
  Company Number: None

PATIENT
  Age: 54 Year
  Sex: Female
  Weight: 58.97 kg

DRUGS (12)
  1. PROTON INHIBITORS LANSOPRAZOLE 50MG [Suspect]
     Active Substance: LANSOPRAZOLE
     Indication: CONSTIPATION
     Route: 048
     Dates: start: 20150226, end: 20150311
  2. LANSOPRAZOLE. [Concomitant]
     Active Substance: LANSOPRAZOLE
  3. PROCORALAN [Concomitant]
     Active Substance: IVABRADINE
  4. GLYCERYL NITRATE [Concomitant]
  5. VENTOLIN [Concomitant]
     Active Substance: ALBUTEROL SULFATE
  6. PROTON INHIBITORS LANSOPRAZOLE 50MG [Suspect]
     Active Substance: LANSOPRAZOLE
     Indication: GASTRIC DISORDER
     Route: 048
     Dates: start: 20150226, end: 20150311
  7. RAMIPRIL. [Concomitant]
     Active Substance: RAMIPRIL
  8. SOLO [Concomitant]
  9. BENYDRYL [Concomitant]
  10. HYDOXYZINE [Concomitant]
  11. BRILLIQUE [Concomitant]
     Active Substance: TICAGRELOR
  12. ASPIRIN. [Concomitant]
     Active Substance: ASPIRIN

REACTIONS (3)
  - Malaise [None]
  - Angina pectoris [None]
  - Dyspnoea [None]

NARRATIVE: CASE EVENT DATE: 20150224
